FAERS Safety Report 19561871 (Version 1)
Quarter: 2021Q3

REPORT INFORMATION
  Report Type: Spontaneous
  Country: US (occurrence: US)
  Receive Date: 20210716
  Receipt Date: 20210716
  Transmission Date: 20211014
  Serious: Yes (Other)
  Sender: FDA-Public Use
  Company Number: None

PATIENT
  Sex: Female

DRUGS (1)
  1. MIMVEY [Suspect]
     Active Substance: ESTRADIOL\NORETHINDRONE ACETATE

REACTIONS (2)
  - Vaginal haemorrhage [None]
  - Endometrial thickening [None]
